FAERS Safety Report 4833200-7 (Version None)
Quarter: 2005Q4

REPORT INFORMATION
  Report Type: 
  Country: None (occurrence: None)
  Receive Date: 20051121
  Receipt Date: 20051114
  Transmission Date: 20060501
  Serious: Yes (Life-Threatening)
  Sender: FDA-Public Use
  Company Number: JP-JNJFOC-20051101942

PATIENT
  Sex: Female

DRUGS (7)
  1. DUROTEP [Suspect]
     Indication: CANCER PAIN
     Route: 062
  2. VELCADE [Suspect]
  3. VELCADE [Suspect]
     Indication: MULTIPLE MYELOMA
  4. FLUCONAZOLE [Concomitant]
     Route: 048
  5. SULFAMETHOXAZOLE + TRIMETHOPRIM [Concomitant]
     Route: 048
  6. SULFAMETHOXAZOLE + TRIMETHOPRIM [Concomitant]
     Route: 048
  7. FAMOTIDINE [Concomitant]
     Route: 048

REACTIONS (3)
  - INTERSTITIAL LUNG DISEASE [None]
  - PYREXIA [None]
  - RESPIRATORY DISTRESS [None]
